FAERS Safety Report 20234459 (Version 1)
Quarter: 2021Q4

REPORT INFORMATION
  Report Type: Report from Study
  Country: DK (occurrence: DK)
  Receive Date: 20211227
  Receipt Date: 20211227
  Transmission Date: 20220303
  Serious: Yes (Death, Other)
  Sender: FDA-Public Use
  Company Number: DK-BRISTOL-MYERS SQUIBB COMPANY-BMS-2021-141752

PATIENT
  Age: 80 Year
  Sex: Female

DRUGS (1)
  1. NIVOLUMAB [Suspect]
     Active Substance: NIVOLUMAB
     Indication: Metastatic malignant melanoma
     Dosage: 3 MILLIGRAM/KILOGRAM, Q2WK
     Route: 042

REACTIONS (9)
  - Urosepsis [Fatal]
  - Multiple organ dysfunction syndrome [Fatal]
  - Hyponatraemia [Fatal]
  - Immune-mediated enterocolitis [Unknown]
  - Immune-mediated lung disease [Unknown]
  - Arthralgia [Unknown]
  - Vasculitis [Unknown]
  - Infusion related hypersensitivity reaction [Unknown]
  - Off label use [Unknown]
